FAERS Safety Report 24555591 (Version 1)
Quarter: 2024Q4

REPORT INFORMATION
  Report Type: Spontaneous
  Country: US (occurrence: US)
  Receive Date: 20241028
  Receipt Date: 20241028
  Transmission Date: 20250114
  Serious: Yes (Hospitalization)
  Sender: HIKMA
  Company Number: US-HIKMA PHARMACEUTICALS USA INC.-US-H14001-24-09794

PATIENT
  Age: 61 Year
  Sex: Male

DRUGS (1)
  1. HEPARIN [Suspect]
     Active Substance: HEPARIN SODIUM
     Indication: Product used for unknown indication
     Dosage: UNK
     Route: 058

REACTIONS (7)
  - Ocular ischaemic syndrome [Recovering/Resolving]
  - Heparin-induced thrombocytopenia [Recovering/Resolving]
  - Ischaemic stroke [Recovering/Resolving]
  - Embolic stroke [Recovering/Resolving]
  - Aortic thrombosis [Recovering/Resolving]
  - Vascular stent occlusion [Recovering/Resolving]
  - Disease recurrence [Recovering/Resolving]
